FAERS Safety Report 7083447-7 (Version None)
Quarter: 2010Q4

REPORT INFORMATION
  Report Type: 
  Country: None (occurrence: None)
  Receive Date: 20101104
  Receipt Date: 20101029
  Transmission Date: 20110411
  Serious: Yes (Other)
  Sender: FDA-Public Use
  Company Number: B0665300A

PATIENT
  Sex: Female

DRUGS (4)
  1. XYZAL [Suspect]
     Indication: NASOPHARYNGITIS
     Route: 048
     Dates: start: 20100301, end: 20100404
  2. IBUPROFEN [Suspect]
     Indication: NASOPHARYNGITIS
     Route: 048
     Dates: start: 20100301, end: 20100404
  3. VOLTAREN [Suspect]
     Route: 065
     Dates: start: 20100301, end: 20100404
  4. BECLOMETHASONE DIPROPIONATE [Suspect]
     Indication: NASOPHARYNGITIS
     Route: 048
     Dates: start: 20100301, end: 20100404

REACTIONS (2)
  - FACE OEDEMA [None]
  - URTICARIA [None]
